FAERS Safety Report 15044773 (Version 2)
Quarter: 2018Q2

REPORT INFORMATION
  Report Type: Report from Study
  Country: None (occurrence: US)
  Receive Date: 20180621
  Receipt Date: 20180622
  Transmission Date: 20180711
  Serious: Yes (Other)
  Sender: FDA-Public Use
  Company Number: US-ABBVIE-18P-163-2387641-00

PATIENT
  Age: 59 Year
  Sex: Male
  Weight: 71 kg

DRUGS (18)
  1. VENETOCLAX. [Suspect]
     Active Substance: VENETOCLAX
     Indication: B-CELL LYMPHOMA
     Dosage: 200-800 MG PER PROTOCOL;  MOST RECENT DOSE (800MG) P/T AE ONSET ON 11 JUL 2016
     Route: 048
     Dates: start: 20160208, end: 20180511
  2. CYCLOPHOSPHAMIDE. [Suspect]
     Active Substance: CYCLOPHOSPHAMIDE
     Indication: B-CELL LYMPHOMA
     Dosage: MOST RECENT DOSE(1400 MG)  PRIOR TO AE ONSET ON 20 MAY 2016
     Route: 042
     Dates: start: 20160205
  3. VITAMIN D3 [Concomitant]
     Active Substance: CHOLECALCIFEROL
     Indication: HYPOCALCAEMIA
     Dates: start: 20160126
  4. RITUXIMAB. [Suspect]
     Active Substance: RITUXIMAB
     Indication: B-CELL LYMPHOMA
     Dosage: MOST RECENT DOSE (700 MG) PRIOR TO AE ONSET ON 01 JUL 2016 AT 12:28
     Route: 042
     Dates: start: 20160205
  5. GLIMEPIRIDE. [Concomitant]
     Active Substance: GLIMEPIRIDE
     Indication: DIABETES MELLITUS
     Dates: start: 20160126
  6. ALPHAGAN P [Concomitant]
     Active Substance: BRIMONIDINE TARTRATE
     Indication: INTRAOCULAR PRESSURE DECREASED
     Dates: start: 20160126
  7. LATANOPROST OPTHALMIC [Concomitant]
     Active Substance: LATANOPROST
     Indication: GLAUCOMA
     Dates: start: 20160126
  8. CYCLOSPORINE. [Concomitant]
     Active Substance: CYCLOSPORINE
     Indication: DRY EYE
     Dates: start: 20160126
  9. UBIQUINONE [Concomitant]
     Active Substance: UBIDECARENONE
     Indication: PRODUCT USED FOR UNKNOWN INDICATION
     Dates: start: 20160126
  10. VINCRISTINE [Suspect]
     Active Substance: VINCRISTINE
     Indication: B-CELL LYMPHOMA
     Dosage: MOST RECENT DOSE (2MG) PRIOR TO AE ONSET ON 20 MAY 2016.
     Route: 042
     Dates: start: 20160205
  11. CALCIUM CARBONATE. [Concomitant]
     Active Substance: CALCIUM CARBONATE
     Indication: PRODUCT USED FOR UNKNOWN INDICATION
     Dates: start: 20161118
  12. DOXORUBICIN [Suspect]
     Active Substance: DOXORUBICIN
     Indication: B-CELL LYMPHOMA
     Dosage: MOST RECENT DOSE (90MG) PRIOR TO AE ONSET ON 20 MAY 2016
     Route: 042
     Dates: start: 20160205
  13. PREDNISONE. [Suspect]
     Active Substance: PREDNISONE
     Indication: B-CELL LYMPHOMA
     Dosage: MOST RECENT DOSE (100 MG) PRIOR TO AE ONSET ON 24 MAY 2018; D 1-5 OF 21 D CYCLE
     Route: 048
     Dates: start: 20160205
  14. SYSTANE ULTRA [Concomitant]
     Active Substance: POLYETHYLENE GLYCOL 400\PROPYLENE GLYCOL
     Indication: PRODUCT USED FOR UNKNOWN INDICATION
     Dates: start: 20160126
  15. RANITIDINE. [Concomitant]
     Active Substance: RANITIDINE
     Indication: COUGH
     Dates: start: 20160918
  16. SITAGLIPTIN [Concomitant]
     Active Substance: SITAGLIPTIN
     Indication: DIABETES MELLITUS
     Dates: start: 20160126
  17. DORZOLAMIDE-TIMOLOL OPTHALMIC [Concomitant]
     Indication: GLAUCOMA
     Dates: start: 20160126
  18. VITAMIN C [Concomitant]
     Active Substance: ASCORBIC ACID
     Indication: PRODUCT USED FOR UNKNOWN INDICATION
     Dates: start: 20160126

REACTIONS (1)
  - Glioblastoma [Not Recovered/Not Resolved]

NARRATIVE: CASE EVENT DATE: 20180511
